FAERS Safety Report 19647651 (Version 1)
Quarter: 2021Q3

REPORT INFORMATION
  Report Type: Spontaneous
  Country: KR (occurrence: KR)
  Receive Date: 20210802
  Receipt Date: 20210802
  Transmission Date: 20211014
  Serious: Yes (Other)
  Sender: FDA-Public Use
  Company Number: KR-ALLERGAN-2127117US

PATIENT
  Sex: Female

DRUGS (1)
  1. ESCITALOPRAM OXALATE ? BP [Suspect]
     Active Substance: ESCITALOPRAM OXALATE
     Indication: DEPRESSION
     Dosage: UNK

REACTIONS (8)
  - Dyspepsia [Unknown]
  - Therapeutic response decreased [Unknown]
  - Feeling abnormal [Recovering/Resolving]
  - Slow speech [Unknown]
  - Mental impairment [Recovering/Resolving]
  - Depressed mood [Recovering/Resolving]
  - Decreased activity [Unknown]
  - Decreased interest [Recovering/Resolving]
